FAERS Safety Report 13420629 (Version 2)
Quarter: 2017Q2

REPORT INFORMATION
  Report Type: Spontaneous
  Country: CL (occurrence: CL)
  Receive Date: 20170408
  Receipt Date: 20170512
  Transmission Date: 20170830
  Serious: Yes (Other)
  Sender: FDA-Public Use
  Company Number: PHHY2017CL051028

PATIENT
  Sex: Male
  Weight: 2.52 kg

DRUGS (1)
  1. FEMARA [Suspect]
     Active Substance: LETROZOLE
     Dosage: UNK
     Route: 064

REACTIONS (3)
  - Cleft lip and palate [Unknown]
  - Foetal heart rate decreased [Unknown]
  - Foetal exposure during pregnancy [Unknown]

NARRATIVE: CASE EVENT DATE: 20160718
